FAERS Safety Report 5375360-8 (Version None)
Quarter: 2007Q2

REPORT INFORMATION
  Report Type: 
  Country: None (occurrence: None)
  Receive Date: 20070629
  Receipt Date: 20070626
  Transmission Date: 20071010
  Serious: Yes (Life-Threatening, Hospitalization)
  Sender: FDA-Public Use
  Company Number: NL-ABBOTT-07P-114-0372718-00

PATIENT
  Sex: Female
  Weight: 100 kg

DRUGS (19)
  1. HUMIRA [Suspect]
     Indication: RHEUMATOID ARTHRITIS
     Route: 058
     Dates: start: 20061123
  2. INSULIN ASPART [Interacting]
     Indication: DIABETES MELLITUS INSULIN-DEPENDENT
     Dosage: 100E/ML
     Route: 058
     Dates: start: 20060323
  3. INSULIN ASPART [Interacting]
     Dosage: DOSE DECREASED
     Route: 058
  4. INSULIN GLARGINE [Interacting]
     Indication: DIABETES MELLITUS INSULIN-DEPENDENT
     Dosage: 100IE/ML, 3ML
     Route: 058
     Dates: start: 20060323
  5. INSULIN GLARGINE [Interacting]
     Dosage: DOSE DECREASED
     Route: 058
  6. FLUTICASONE PROPIONATE [Concomitant]
     Indication: DRUG USE FOR UNKNOWN INDICATION
     Route: 055
     Dates: start: 20070129
  7. COSOPT [Concomitant]
     Indication: DRUG USE FOR UNKNOWN INDICATION
     Route: 031
  8. CARMELLOSE SODIUM [Concomitant]
     Indication: DRUG USE FOR UNKNOWN INDICATION
     Dosage: 10 MG/ML TUBE 0.4ML
     Route: 031
     Dates: start: 20060119
  9. TEARS PLUS [Concomitant]
     Indication: DRUG USE FOR UNKNOWN INDICATION
     Dates: start: 20060119
  10. METHOTREXATE [Concomitant]
     Indication: DRUG USE FOR UNKNOWN INDICATION
     Route: 048
     Dates: start: 20051014
  11. DICLOFENAC SODIUM [Concomitant]
     Indication: DRUG USE FOR UNKNOWN INDICATION
     Dosage: RETARD TABLET
     Route: 048
     Dates: start: 20050530
  12. FOLIC ACID [Concomitant]
     Indication: DRUG USE FOR UNKNOWN INDICATION
     Route: 048
     Dates: start: 20051014
  13. TENORETIC 100 [Concomitant]
     Indication: DRUG USE FOR UNKNOWN INDICATION
     Route: 048
  14. ALENDRONATE SODIUM [Concomitant]
     Indication: DRUG USE FOR UNKNOWN INDICATION
     Route: 048
     Dates: start: 20050914
  15. LEVOTHYROXINE SODIUM [Concomitant]
     Indication: DRUG USE FOR UNKNOWN INDICATION
     Dosage: DUOTAB TABLET
     Route: 048
     Dates: start: 19870101
  16. LEVOTHYROXINE SODIUM [Concomitant]
     Dosage: DUOTAB
     Route: 048
     Dates: start: 20050624
  17. OMEPRAZOLE [Concomitant]
     Indication: DRUG USE FOR UNKNOWN INDICATION
     Route: 048
  18. METOCLOPRAMIDE HYDROCHLORIDE [Concomitant]
     Indication: DRUG USE FOR UNKNOWN INDICATION
     Route: 048
  19. CARBASALATE CALCIUM [Concomitant]
     Indication: DRUG USE FOR UNKNOWN INDICATION
     Route: 048

REACTIONS (2)
  - DRUG INTERACTION [None]
  - HYPOGLYCAEMIA [None]
